FAERS Safety Report 6184681-0 (Version None)
Quarter: 2009Q2

REPORT INFORMATION
  Report Type: 
  Country: None (occurrence: None)
  Receive Date: 20090508
  Receipt Date: 20090428
  Transmission Date: 20091009
  Serious: Yes (Other)
  Sender: FDA-Public Use
  Company Number: CZ-PFIZER INC-2009203648

PATIENT
  Age: 24 Year

DRUGS (2)
  1. DOSTINEX [Suspect]
     Indication: HYPERPROLACTINAEMIA
     Dosage: 0.25 MG, UNK
  2. MYSALFON [Concomitant]
     Dosage: UNK
     Route: 048
     Dates: end: 20090401

REACTIONS (6)
  - ANAEMIA [None]
  - BLOOD PROLACTIN INCREASED [None]
  - DIZZINESS [None]
  - FATIGUE [None]
  - HEADACHE [None]
  - MENSTRUATION IRREGULAR [None]
